FAERS Safety Report 13617490 (Version 1)
Quarter: 2017Q2

REPORT INFORMATION
  Report Type: Spontaneous
  Country: US (occurrence: US)
  Receive Date: 20170606
  Receipt Date: 20170606
  Transmission Date: 20170830
  Serious: No
  Sender: FDA-Public Use
  Company Number: US-SA-2016SA232182

PATIENT
  Sex: Male

DRUGS (3)
  1. LANTUS [Suspect]
     Active Substance: INSULIN GLARGINE
     Indication: DIABETES MELLITUS
     Route: 065
  2. VICTOZA [Concomitant]
     Active Substance: LIRAGLUTIDE
  3. VICTOZA [Concomitant]
     Active Substance: LIRAGLUTIDE

REACTIONS (2)
  - Hypoglycaemia [Unknown]
  - Weight decreased [Unknown]
